FAERS Safety Report 4839006-7 (Version None)
Quarter: 2005Q4

REPORT INFORMATION
  Report Type: 
  Country: None (occurrence: None)
  Receive Date: 20051129
  Receipt Date: 20051114
  Transmission Date: 20060501
  Serious: Yes (Hospitalization)
  Sender: FDA-Public Use
  Company Number: GBWYE146916NOV05

PATIENT
  Sex: Female
  Weight: 67 kg

DRUGS (4)
  1. ENBREL [Suspect]
     Indication: RHEUMATOID ARTHRITIS
     Route: 058
     Dates: start: 20031001
  2. CO-CODAMOL [Concomitant]
     Dosage: UNKNOWN
     Route: 065
  3. LEVOTHYROXINE SODIUM [Concomitant]
     Dosage: UNKNOWN
     Route: 065
  4. VOLTAREN [Concomitant]
     Dosage: UNKNOWN
     Route: 065

REACTIONS (2)
  - ARTHRITIS [None]
  - CONDITION AGGRAVATED [None]
